FAERS Safety Report 7105524-4 (Version None)
Quarter: 2010Q4

REPORT INFORMATION
  Report Type: 
  Country: None (occurrence: None)
  Receive Date: 20101116
  Receipt Date: 20101109
  Transmission Date: 20110411
  Serious: Yes (Other)
  Sender: FDA-Public Use
  Company Number: US-ROCHE-721637

PATIENT
  Sex: Male
  Weight: 74.8 kg

DRUGS (2)
  1. ACCUTANE [Suspect]
     Indication: ACNE
     Route: 065
     Dates: start: 19981203, end: 19990227
  2. IBUPROFEN [Concomitant]
     Dosage: AS NEEDED

REACTIONS (9)
  - ACUTE SINUSITIS [None]
  - APATHY [None]
  - COLITIS [None]
  - CROHN'S DISEASE [None]
  - DEPERSONALISATION [None]
  - DEPRESSION [None]
  - INFLAMMATORY BOWEL DISEASE [None]
  - SUICIDAL IDEATION [None]
  - WEIGHT DECREASED [None]
